FAERS Safety Report 9357520 (Version 1)
Quarter: 2013Q2

REPORT INFORMATION
  Report Type: Spontaneous
  Country: BR (occurrence: BR)
  Receive Date: 20130620
  Receipt Date: 20130620
  Transmission Date: 20140414
  Serious: Yes (Other)
  Sender: FDA-Public Use
  Company Number: PHHY2013BR062381

PATIENT
  Sex: Female

DRUGS (1)
  1. RITALIN LA [Suspect]
     Dosage: UNK UKN, UNK

REACTIONS (2)
  - Asthma [Unknown]
  - Rhinitis [Unknown]
